FAERS Safety Report 8870566 (Version 1)
Quarter: 2012Q4

REPORT INFORMATION
  Report Type: 
  Country: US (occurrence: US)
  Receive Date: 20121026
  Receipt Date: 20121026
  Transmission Date: 20130627
  Serious: No
  Sender: FDA-Public Use
  Company Number: US-AMGEN-USASP2012043450

PATIENT
  Sex: Female

DRUGS (1)
  1. ENBREL [Suspect]
     Indication: PSORIATIC ARTHROPATHY
     Dosage: 25 mg, 3 times/wk
     Route: 058
     Dates: start: 20120607

REACTIONS (7)
  - Dehydration [Unknown]
  - Dizziness [Unknown]
  - Dysuria [Unknown]
  - Dysgeusia [Unknown]
  - Headache [Unknown]
  - Constipation [Unknown]
  - Asthenia [Unknown]
